FAERS Safety Report 14650683 (Version 1)
Quarter: 2018Q1

REPORT INFORMATION
  Report Type: Spontaneous
  Country: DK (occurrence: DK)
  Receive Date: 20180316
  Receipt Date: 20180316
  Transmission Date: 20180509
  Serious: Yes (Death, Congenital Anomaly)
  Sender: FDA-Public Use
  Company Number: DK-TEVA-2018-DK-868838

PATIENT
  Age: 0 Day
  Sex: Female

DRUGS (1)
  1. TRAMADOL ^ACTAVIS^ [Suspect]
     Active Substance: TRAMADOL
     Indication: PAIN
     Dosage: STYRKE: 50 MG
     Route: 064

REACTIONS (3)
  - Intestinal malrotation [Fatal]
  - Volvulus of small bowel [Fatal]
  - Foetal exposure during pregnancy [Fatal]
